FAERS Safety Report 6546858-1 (Version None)
Quarter: 2010Q1

REPORT INFORMATION
  Report Type: 
  Country: None (occurrence: None)
  Receive Date: 20100122
  Receipt Date: 20100119
  Transmission Date: 20100710
  Serious: Yes (Death, Life-Threatening, Other)
  Sender: FDA-Public Use
  Company Number: RU-ABBOTT-09P-251-0599521-00

PATIENT
  Sex: Male

DRUGS (1)
  1. KLACID [Suspect]
     Indication: PNEUMONIA
     Route: 042
     Dates: start: 20090924, end: 20090924

REACTIONS (10)
  - CHILLS [None]
  - HYPERHIDROSIS [None]
  - HYPERSENSITIVITY [None]
  - PALLOR [None]
  - PNEUMONIA KLEBSIELLA [None]
  - PYREXIA [None]
  - RESPIRATORY FAILURE [None]
  - TACHYCARDIA [None]
  - TACHYPNOEA [None]
  - TREMOR [None]
